FAERS Safety Report 9869190 (Version 1)
Quarter: 2014Q1

REPORT INFORMATION
  Report Type: Spontaneous
  Country: GR (occurrence: GR)
  Receive Date: 20140205
  Receipt Date: 20140205
  Transmission Date: 20141002
  Serious: Yes (Other)
  Sender: FDA-Public Use
  Company Number: GR-ORION CORPORATION ORION PHARMA-ENTC2014-0032

PATIENT
  Age: 82 Year
  Sex: Female

DRUGS (1)
  1. STALEVO [Suspect]
     Indication: PARKINSON^S DISEASE
     Dosage: STRENGTRH: 50/12.5/200
     Route: 065
     Dates: start: 20140124, end: 20140126

REACTIONS (6)
  - Abdominal pain upper [Unknown]
  - Angina pectoris [Unknown]
  - Back pain [Unknown]
  - Vomiting [Unknown]
  - Abdominal distension [Unknown]
  - Asthenia [Unknown]
